FAERS Safety Report 6446821-5 (Version None)
Quarter: 2009Q4

REPORT INFORMATION
  Report Type: 
  Country: None (occurrence: None)
  Receive Date: 20091119
  Receipt Date: 20091113
  Transmission Date: 20100525
  Serious: Yes (Other)
  Sender: FDA-Public Use
  Company Number: PHHY2009JP50092

PATIENT
  Sex: Female

DRUGS (2)
  1. TEGRETOL [Suspect]
     Route: 048
  2. GABAPENTIN [Concomitant]
     Route: 048

REACTIONS (1)
  - HAEMATURIA [None]
